FAERS Safety Report 25459494 (Version 1)
Quarter: 2025Q2

REPORT INFORMATION
  Report Type: Report from Study
  Country: US (occurrence: US)
  Receive Date: 20250620
  Receipt Date: 20250620
  Transmission Date: 20250717
  Serious: Yes (Hospitalization)
  Sender: ACADIA PHARMACEUTICALS
  Company Number: US-ACADIA PHARMACEUTICALS INC.-ACA-2025-PIM-007280

PATIENT
  Age: 82 Year
  Sex: Female

DRUGS (26)
  1. NUPLAZID [Suspect]
     Active Substance: PIMAVANSERIN TARTRATE
     Indication: Parkinson^s disease
     Dosage: 34 MILLIGRAM, QD
     Route: 048
     Dates: start: 20230906
  2. NUPLAZID [Suspect]
     Active Substance: PIMAVANSERIN TARTRATE
     Indication: Schizophrenia
  3. NUPLAZID [Suspect]
     Active Substance: PIMAVANSERIN TARTRATE
     Indication: Psychotic disorder
  4. NUPLAZID [Suspect]
     Active Substance: PIMAVANSERIN TARTRATE
     Indication: Hallucination
  5. LEVOTHYROXINE [Concomitant]
     Active Substance: LEVOTHYROXINE
  6. LIPITOR [Concomitant]
     Active Substance: ATORVASTATIN CALCIUM
  7. FAMOTIDINE [Concomitant]
     Active Substance: FAMOTIDINE
  8. LEXAPRO [Concomitant]
     Active Substance: ESCITALOPRAM OXALATE
  9. RIVASTIGMINE [Concomitant]
     Active Substance: RIVASTIGMINE
  10. CALCIUM [Concomitant]
     Active Substance: CALCIUM
  11. FOSAMAX [Concomitant]
     Active Substance: ALENDRONATE SODIUM
  12. BIOTIN [Concomitant]
     Active Substance: BIOTIN
  13. ZYRTEC [Concomitant]
     Active Substance: CETIRIZINE HYDROCHLORIDE
  14. DOCUSATE SODIUM [Concomitant]
     Active Substance: DOCUSATE SODIUM
  15. SENNA [Concomitant]
     Active Substance: SENNOSIDES
  16. FIBER THERAPY (CALCIUM POLYCARBOPHIL) [Concomitant]
     Active Substance: CALCIUM POLYCARBOPHIL
  17. PROBIOTICS [PROBIOTICS NOS] [Concomitant]
  18. CHOLECALCIFEROL [Concomitant]
     Active Substance: CHOLECALCIFEROL
  19. SEROQUEL [Concomitant]
     Active Substance: QUETIAPINE FUMARATE
  20. DOXEPIN [Concomitant]
     Active Substance: DOXEPIN
  21. ALBUTEROL SULFATE [Concomitant]
     Active Substance: ALBUTEROL SULFATE
  22. AZO [Concomitant]
     Active Substance: PHENAZOPYRIDINE HYDROCHLORIDE
  23. LASIX [Concomitant]
     Active Substance: FUROSEMIDE
  24. ATIVAN [Concomitant]
     Active Substance: LORAZEPAM
  25. NORCO [Concomitant]
     Active Substance: ACETAMINOPHEN\HYDROCODONE BITARTRATE
  26. MELOXICAM [Concomitant]
     Active Substance: MELOXICAM

REACTIONS (2)
  - Urinary tract infection [Not Recovered/Not Resolved]
  - Product use in unapproved indication [Not Recovered/Not Resolved]

NARRATIVE: CASE EVENT DATE: 20250601
